FAERS Safety Report 4511036-4 (Version None)
Quarter: 2004Q4

REPORT INFORMATION
  Report Type: 
  Country: None (occurrence: None)
  Receive Date: 20041018
  Receipt Date: 20040917
  Transmission Date: 20050328
  Serious: No
  Sender: FDA-Public Use
  Company Number: 209174

PATIENT
  Age: 44 Year
  Sex: Male
  Weight: 83.4 kg

DRUGS (2)
  1. XOLAIR [Suspect]
     Indication: ANGIONEUROTIC OEDEMA
     Dosage: 1.3 ML, Q2W, SUBCUTANEOUS
     Route: 058
     Dates: start: 20040330
  2. SINGULAIR [Concomitant]

REACTIONS (1)
  - UPPER RESPIRATORY TRACT INFECTION [None]
